FAERS Safety Report 22251076 (Version 1)
Quarter: 2023Q2

REPORT INFORMATION
  Report Type: Spontaneous
  Country: US (occurrence: US)
  Receive Date: 20230425
  Receipt Date: 20230425
  Transmission Date: 20230721
  Serious: Yes (Hospitalization)
  Sender: FDA-Public Use
  Company Number: US-BIOVITRUM-2023-US-009725

PATIENT
  Sex: Male
  Weight: 8.5 kg

DRUGS (2)
  1. SYNAGIS [Suspect]
     Active Substance: PALIVIZUMAB
     Indication: Respiratory disorder neonatal
     Dosage: ONCE A MONTH??500 MG SDV/INJ PF 0.5 ML 1^S?100 MG SDV/INJ PF 1 ML 1^S
     Route: 030
  2. SYNAGIS [Suspect]
     Active Substance: PALIVIZUMAB
     Indication: Premature baby

REACTIONS (1)
  - Upper respiratory tract infection [Not Recovered/Not Resolved]
